FAERS Safety Report 16153764 (Version 3)
Quarter: 2019Q2

REPORT INFORMATION
  Report Type: Spontaneous
  Country: US (occurrence: US)
  Receive Date: 20190403
  Receipt Date: 20190515
  Transmission Date: 20190711
  Serious: Yes (Hospitalization, Other)
  Sender: FDA-Public Use
  Company Number: US-GLAXOSMITHKLINE-US2019GSK056178

PATIENT
  Sex: Female

DRUGS (2)
  1. NUCALA [Suspect]
     Active Substance: MEPOLIZUMAB
     Indication: PULMONARY VASCULITIS
     Dosage: 100 MG, UNK
     Route: 042
  2. PREDNISONE. [Suspect]
     Active Substance: PREDNISONE
     Indication: PRODUCT USED FOR UNKNOWN INDICATION
     Dosage: UNK

REACTIONS (21)
  - Upper-airway cough syndrome [Unknown]
  - Rhinorrhoea [Unknown]
  - Nasal discomfort [Unknown]
  - Cataract operation [Unknown]
  - Influenza [Unknown]
  - Viral infection [Unknown]
  - Sputum discoloured [Unknown]
  - Malaise [Unknown]
  - Nasal congestion [Unknown]
  - Cough [Unknown]
  - Feeling abnormal [Unknown]
  - Dyspnoea [Unknown]
  - Asthma [Unknown]
  - Food allergy [Unknown]
  - Epistaxis [Unknown]
  - Ear infection [Unknown]
  - Asthenia [Unknown]
  - Nasopharyngitis [Unknown]
  - Oxygen saturation decreased [Unknown]
  - Ill-defined disorder [Unknown]
  - Paranasal sinus hypersecretion [Unknown]
